FAERS Safety Report 4718176-5 (Version None)
Quarter: 2005Q3

REPORT INFORMATION
  Report Type: 
  Country: None (occurrence: None)
  Receive Date: 20050720
  Receipt Date: 20050621
  Transmission Date: 20060218
  Serious: Yes (Hospitalization)
  Sender: FDA-Public Use
  Company Number: DE-ROCHE-408399

PATIENT
  Age: 45 Year
  Sex: Female

DRUGS (2)
  1. PEG-INTERFERON A-2A (RO 25-8310) [Suspect]
     Route: 058
     Dates: start: 20050311, end: 20050415
  2. REDUCTIL [Concomitant]
     Dates: start: 20050615

REACTIONS (5)
  - ACUTE STRESS DISORDER [None]
  - DEPRESSION [None]
  - PERSONALITY DISORDER [None]
  - SUICIDAL IDEATION [None]
  - WHITE BLOOD CELL COUNT DECREASED [None]
